FAERS Safety Report 5714728-4 (Version None)
Quarter: 2008Q2

REPORT INFORMATION
  Report Type: 
  Country: None (occurrence: None)
  Receive Date: 20080423
  Receipt Date: 20041029
  Transmission Date: 20081010
  Serious: Yes (Death)
  Sender: FDA-Public Use
  Company Number: DE-ROCHE-384623

PATIENT
  Sex: Male

DRUGS (5)
  1. CAPECITABINE [Suspect]
     Indication: RECTAL CANCER
     Dosage: ADMINISTERED CONTINUOUSLY.
     Route: 048
     Dates: start: 20030603, end: 20030714
  2. CAPECITABINE [Suspect]
     Dosage: GIVEN IN COMBINATION WITH OXALIPLATIN
     Route: 048
     Dates: start: 20040101, end: 20040601
  3. CAPECITABINE [Suspect]
     Dosage: GIVEN IN COMBINATION WITH IRINOTECAN
     Route: 048
     Dates: start: 20040601
  4. OXALIPLATIN [Suspect]
     Indication: CHEMOTHERAPY
     Dosage: GIVEN IN COMBINATION WITH CAPECITABINE
     Route: 065
     Dates: start: 20040101, end: 20040601
  5. IRINOTECAN HCL [Suspect]
     Indication: CHEMOTHERAPY
     Route: 065
     Dates: start: 20040601

REACTIONS (1)
  - DEATH [None]
